FAERS Safety Report 18090640 (Version 1)
Quarter: 2020Q3

REPORT INFORMATION
  Report Type: Spontaneous
  Country: US (occurrence: US)
  Receive Date: 20200730
  Receipt Date: 20200730
  Transmission Date: 20201103
  Serious: Yes (Other)
  Sender: FDA-Public Use
  Company Number: US-TEVA-2020-US-1807808

PATIENT
  Age: 49 Year
  Sex: Male

DRUGS (1)
  1. AJOVY [Suspect]
     Active Substance: FREMANEZUMAB-VFRM
     Indication: MIGRAINE
     Dates: start: 20200225

REACTIONS (2)
  - Deep vein thrombosis [Unknown]
  - Radius fracture [Not Recovered/Not Resolved]

NARRATIVE: CASE EVENT DATE: 2020
